FAERS Safety Report 4865311-4 (Version None)
Quarter: 2005Q4

REPORT INFORMATION
  Report Type: 
  Country: None (occurrence: None)
  Receive Date: 20051223
  Receipt Date: 20051219
  Transmission Date: 20060501
  Serious: Yes (Hospitalization, Disabling)
  Sender: FDA-Public Use
  Company Number: 2005GB02456

PATIENT
  Age: 47 Year
  Sex: Female

DRUGS (4)
  1. QUETIAPINE FUMARATE [Suspect]
     Indication: BIPOLAR DISORDER
     Route: 048
     Dates: start: 20040930, end: 20051104
  2. LEVOTHYROXINE SODIUM [Concomitant]
     Indication: HYPOTHYROIDISM
     Route: 048
  3. CARBAMAZEPINE [Concomitant]
     Indication: BIPOLAR DISORDER
     Route: 048
     Dates: start: 20051031, end: 20051121
  4. LORAZEPAM [Concomitant]
     Indication: AGITATION
     Dosage: VARIABLE
     Route: 048
     Dates: start: 20050801

REACTIONS (2)
  - DRUG WITHDRAWAL SYNDROME [None]
  - PSYCHOTIC DISORDER [None]
